FAERS Safety Report 7837099-6 (Version None)
Quarter: 2011Q4

REPORT INFORMATION
  Report Type: 
  Country: None (occurrence: None)
  Receive Date: 20111024
  Receipt Date: 20110303
  Transmission Date: 20120403
  Serious: No
  Sender: FDA-Public Use
  Company Number: US-ABBOTT-11P-163-0709541-00

PATIENT
  Sex: Female

DRUGS (1)
  1. LUPRON DEPOT [Suspect]
     Indication: INFERTILITY FEMALE
     Dosage: UNKNOWN STRENGTH X 1 DOSE
     Route: 058
     Dates: start: 20110301

REACTIONS (3)
  - HEADACHE [None]
  - RASH ERYTHEMATOUS [None]
  - RASH MACULAR [None]
